FAERS Safety Report 12785102 (Version 1)
Quarter: 2016Q3

REPORT INFORMATION
  Report Type: Report from Study
  Country: BR (occurrence: BR)
  Receive Date: 20160927
  Receipt Date: 20160927
  Transmission Date: 20161109
  Serious: Yes (Life-Threatening, Hospitalization, Other)
  Sender: FDA-Public Use
  Company Number: BR-EMD SERONO-8108448

PATIENT
  Sex: Female

DRUGS (2)
  1. SAIZEN [Suspect]
     Active Substance: SOMATROPIN
     Indication: PRECOCIOUS PUBERTY
     Dosage: 1 (UNSPECIFIED UNITS)
     Dates: start: 20160710
  2. SAIZEN [Suspect]
     Active Substance: SOMATROPIN
     Dosage: 0.5 (UNSPECIFIED UNITS)
     Dates: end: 20160815

REACTIONS (4)
  - Anaphylactic shock [Unknown]
  - Weight decreased [Not Recovered/Not Resolved]
  - Throat tightness [Unknown]
  - Oesophageal obstruction [Unknown]

NARRATIVE: CASE EVENT DATE: 2016
